FAERS Safety Report 9619676 (Version 1)
Quarter: 2013Q4

REPORT INFORMATION
  Report Type: Spontaneous
  Country: DE (occurrence: DE)
  Receive Date: 20131014
  Receipt Date: 20131014
  Transmission Date: 20140711
  Serious: Yes (Hospitalization, Other)
  Sender: FDA-Public Use
  Company Number: DE-ELI_LILLY_AND_COMPANY-DE201310002399

PATIENT
  Sex: Male

DRUGS (5)
  1. HUMALOG LISPRO [Suspect]
     Indication: DIABETES MELLITUS
     Dosage: UNK, TID
     Route: 058
     Dates: start: 2013
  2. HUMINSULIN NPH [Suspect]
     Indication: DIABETES MELLITUS
     Dosage: UNK, QD
     Route: 058
     Dates: start: 2013
  3. RAMI-Q COMP. [Concomitant]
     Dosage: UNK
  4. NOVAMINSULFON [Concomitant]
  5. KREON                              /00014701/ [Concomitant]
     Dosage: UNK

REACTIONS (1)
  - Neuroendocrine tumour [Unknown]
